FAERS Safety Report 7645985-5 (Version None)
Quarter: 2011Q3

REPORT INFORMATION
  Report Type: 
  Country: None (occurrence: None)
  Receive Date: 20110729
  Receipt Date: 20110720
  Transmission Date: 20111222
  Serious: Yes (Other)
  Sender: FDA-Public Use
  Company Number: IT-ASTRAZENECA-2011SE39926

PATIENT
  Age: 25127 Day
  Sex: Female

DRUGS (4)
  1. CARBOCAINE [Suspect]
     Indication: LOCAL ANAESTHESIA
     Dosage: 20 MG/ML SOLUTION FOR INJECTION 5 VIALS 10 ML, ONCE/SINGLE ADMINISTRATION
     Route: 058
     Dates: start: 20110525, end: 20110525
  2. NAROPIN [Suspect]
     Indication: LOCAL ANAESTHESIA
     Dosage: 5 POLYAMP 2 MG / ML 10 ML BLISTERS, ONCE/SINGLE ADMINISTRATION
     Route: 058
     Dates: start: 20110525, end: 20110525
  3. HYALURONIDASE [Suspect]
     Indication: LOCAL ANAESTHESIA
     Route: 058
     Dates: start: 20110525, end: 20110525
  4. LIDOCAINA CLORIDRATO ALFA INTES [Suspect]
     Indication: LOCAL ANAESTHESIA
     Dosage: 4% EYE DROPS, SOLUTION 100 SINGLE DOSE CONTAINERS FROM 0.5 ML, ONCE/SINGLE ADMINISTRATION
     Route: 047
     Dates: start: 20110525, end: 20110525

REACTIONS (2)
  - VOMITING [None]
  - ANGIOEDEMA [None]
